FAERS Safety Report 8187369-X (Version None)
Quarter: 2012Q1

REPORT INFORMATION
  Report Type: 
  Country: None (occurrence: None)
  Receive Date: 20120306
  Receipt Date: 20120227
  Transmission Date: 20120608
  Serious: Yes (Other)
  Sender: FDA-Public Use
  Company Number: AU-ROXANE LABORATORIES, INC.-2012-RO-00735RO

PATIENT
  Age: 1 Day
  Sex: Male
  Weight: 2 kg

DRUGS (11)
  1. MORPHINE [Suspect]
     Route: 042
  2. FENTANYL [Suspect]
     Route: 042
  3. CLONIDINE [Suspect]
     Route: 042
  4. CLONIDINE [Suspect]
     Route: 042
  5. MORPHINE [Suspect]
     Indication: ANALGESIC THERAPY
     Route: 042
  6. MORPHINE [Suspect]
     Route: 042
  7. FENTANYL [Suspect]
     Route: 042
  8. MORPHINE [Suspect]
     Route: 042
  9. MIDAZOLAM [Suspect]
     Indication: AGITATION
     Route: 042
  10. FENTANYL [Suspect]
     Indication: ANALGESIC THERAPY
     Route: 042
  11. MORPHINE [Suspect]
     Route: 042

REACTIONS (10)
  - NEONATAL RESPIRATORY DEPRESSION [None]
  - HYPERAESTHESIA [None]
  - PHOTOPHOBIA [None]
  - AGITATION [None]
  - SEPSIS [None]
  - INTESTINAL ISCHAEMIA [None]
  - TACHYCARDIA [None]
  - COAGULOPATHY [None]
  - LIVER FUNCTION TEST ABNORMAL [None]
  - IRRITABILITY [None]
